FAERS Safety Report 5496991-0 (Version None)
Quarter: 2007Q4

REPORT INFORMATION
  Report Type: 
  Country: None (occurrence: None)
  Receive Date: 20071025
  Receipt Date: 20071018
  Transmission Date: 20080405
  Serious: Yes (Hospitalization)
  Sender: FDA-Public Use
  Company Number: JP-AVENTIS-200712780JP

PATIENT
  Sex: Female

DRUGS (2)
  1. ALLEGRA                            /01314201/ [Suspect]
     Route: 048
  2. ONON [Concomitant]

REACTIONS (3)
  - ABDOMINAL PAIN UPPER [None]
  - HEPATITIS [None]
  - JAUNDICE [None]
